FAERS Safety Report 6568044-1 (Version None)
Quarter: 2010Q1

REPORT INFORMATION
  Report Type: 
  Country: None (occurrence: None)
  Receive Date: 20100203
  Receipt Date: 20100121
  Transmission Date: 20100710
  Serious: No
  Sender: FDA-Public Use
  Company Number: BR-ELI_LILLY_AND_COMPANY-BR201001002115

PATIENT
  Sex: Female
  Weight: 82 kg

DRUGS (5)
  1. ZYPREXA [Suspect]
     Indication: DRUG USE FOR UNKNOWN INDICATION
     Dosage: 10 MG, EACH EVENING
     Route: 048
     Dates: start: 20050720
  2. BIPERIDENO [Concomitant]
     Indication: PROPHYLAXIS
     Dosage: UNK, DAILY (1/D)
     Route: 048
  3. CLONAZEPAM [Concomitant]
     Indication: SEDATIVE THERAPY
     Dosage: 2 MG, DAILY (1/D)
     Route: 048
  4. SERTRALINE HCL [Concomitant]
     Indication: DEPRESSION
     Dosage: 50 MG, DAILY (1/D)
     Route: 048
  5. AMITRIPTILINA [Concomitant]
     Indication: DEPRESSION
     Dosage: 25 MG, 3/D
     Route: 048

REACTIONS (6)
  - AMENORRHOEA [None]
  - DIARRHOEA [None]
  - INCORRECT DOSE ADMINISTERED [None]
  - MENSTRUATION IRREGULAR [None]
  - TREMOR [None]
  - WEIGHT INCREASED [None]
